FAERS Safety Report 7719203-3 (Version None)
Quarter: 2011Q3

REPORT INFORMATION
  Report Type: 
  Country: None (occurrence: None)
  Receive Date: 20110830
  Receipt Date: 20110822
  Transmission Date: 20111222
  Serious: Yes (Other)
  Sender: FDA-Public Use
  Company Number: DE-BAYER-2011-075997

PATIENT
  Age: 34 Year
  Sex: Female

DRUGS (1)
  1. MIRENA [Suspect]
     Dosage: UNK
     Route: 015
     Dates: start: 20100101

REACTIONS (3)
  - TONGUE NEOPLASM MALIGNANT STAGE UNSPECIFIED [None]
  - HYPOAESTHESIA ORAL [None]
  - PHARYNGEAL HYPOAESTHESIA [None]
